FAERS Safety Report 4431051-9 (Version None)
Quarter: 2004Q3

REPORT INFORMATION
  Report Type: 
  Country: None (occurrence: None)
  Receive Date: 20040818
  Receipt Date: 20040804
  Transmission Date: 20050211
  Serious: Yes (Death)
  Sender: FDA-Public Use
  Company Number: 2004S1002310

PATIENT
  Age: 56 Year
  Sex: Male

DRUGS (8)
  1. CLOZAPINE [Suspect]
     Dosage: 300MG Q HS, ORAL
     Route: 048
  2. ROFECOXIB [Concomitant]
  3. BENZTROPINE MESYLATE [Concomitant]
  4. CIPROFLOXACIN [Concomitant]
  5. RISPERDAL [Concomitant]
  6. TRAZODONE [Concomitant]
  7. ATORVASTATIN [Concomitant]
  8. ALBUTEROL/IPRATROPIUM [Concomitant]

REACTIONS (1)
  - DEATH [None]
